FAERS Safety Report 7501675-0 (Version None)
Quarter: 2011Q2

REPORT INFORMATION
  Report Type: 
  Country: None (occurrence: None)
  Receive Date: 20110525
  Receipt Date: 20110511
  Transmission Date: 20111010
  Serious: Yes (Other)
  Sender: FDA-Public Use
  Company Number: GB-MYLANLABS-2011S1009675

PATIENT
  Sex: Female

DRUGS (2)
  1. IMPLANON [Suspect]
  2. TERBINAFINE HCL [Suspect]
     Indication: FUNGAL INFECTION

REACTIONS (3)
  - DRUG INTERACTION [None]
  - PREGNANCY WITH IMPLANT CONTRACEPTIVE [None]
  - FUNGAL INFECTION [None]
